FAERS Safety Report 10269277 (Version 1)
Quarter: 2014Q3

REPORT INFORMATION
  Report Type: Spontaneous
  Country: GB (occurrence: GB)
  Receive Date: 20140701
  Receipt Date: 20140701
  Transmission Date: 20150326
  Serious: Yes (Other)
  Sender: FDA-Public Use
  Company Number: GB-TEVA-419897ISR

PATIENT
  Age: 77 Year
  Sex: Female

DRUGS (3)
  1. BISOPROLOL [Suspect]
     Active Substance: BISOPROLOL
     Indication: HYPERTENSION
     Route: 048
  2. LOSARTAN [Interacting]
     Active Substance: LOSARTAN
     Indication: HYPERTENSION
     Route: 048
  3. TIMOLOL [Interacting]
     Active Substance: TIMOLOL
     Route: 047

REACTIONS (4)
  - Dizziness [Unknown]
  - Drug interaction [Unknown]
  - Headache [Unknown]
  - Asthenia [Unknown]
